FAERS Safety Report 21271743 (Version 1)
Quarter: 2022Q3

REPORT INFORMATION
  Report Type: Spontaneous
  Country: GB (occurrence: GB)
  Receive Date: 20220830
  Receipt Date: 20220830
  Transmission Date: 20221027
  Serious: Yes (Death, Other)
  Sender: FDA-Public Use
  Company Number: GB-REC-ISN-NCA-2019-0059

PATIENT
  Age: 37 Year
  Sex: Male

DRUGS (11)
  1. MOXIFLOXACIN [Suspect]
     Active Substance: MOXIFLOXACIN
     Indication: Tuberculosis of central nervous system
     Dosage: UNK
  2. DEXAMETHASONE [Suspect]
     Active Substance: DEXAMETHASONE
     Indication: Tuberculosis of central nervous system
     Dosage: 32 MG, UNK
  3. ETHAMBUTOL [Suspect]
     Active Substance: ETHAMBUTOL HYDROCHLORIDE
     Indication: Disseminated tuberculosis
     Dosage: UNK
  4. ISONIAZID [Suspect]
     Active Substance: ISONIAZID
     Dosage: UNK UNK, BID
  5. LEVOFLOXACIN [Suspect]
     Active Substance: LEVOFLOXACIN
     Indication: Tuberculosis
  6. AMIKACIN SULFATE [Suspect]
     Active Substance: AMIKACIN SULFATE
     Indication: Tuberculosis
  7. PYRAZINAMIDE [Suspect]
     Active Substance: PYRAZINAMIDE
     Indication: Disseminated tuberculosis
     Dosage: UNK
  8. RIFAMPIN [Suspect]
     Active Substance: RIFAMPIN
     Dosage: UNK UNK, BID
  9. ISONIAZID\RIFAMPIN [Suspect]
     Active Substance: ISONIAZID\RIFAMPIN
     Indication: Disseminated tuberculosis
     Dosage: UNK
  10. THALIDOMIDE [Suspect]
     Active Substance: THALIDOMIDE
     Indication: Tuberculosis of central nervous system
     Dosage: 100 MG, UNK
  11. THALIDOMIDE [Suspect]
     Active Substance: THALIDOMIDE
     Indication: Tuberculosis of central nervous system
     Dosage: 400 MG, UNK

REACTIONS (12)
  - Somnolence [Recovered/Resolved]
  - Brain oedema [Recovered/Resolved]
  - Drug ineffective [Unknown]
  - Hydrocephalus [Recovered/Resolved]
  - Thalamic infarction [Recovered/Resolved]
  - Vasculitis [Fatal]
  - Condition aggravated [Fatal]
  - Cardiac arrest [Fatal]
  - Immune reconstitution inflammatory syndrome [Fatal]
  - Drug resistance [Fatal]
  - Coma scale abnormal [Fatal]
  - Tuberculosis of central nervous system [Fatal]
